FAERS Safety Report 9830535 (Version 4)
Quarter: 2014Q4

REPORT INFORMATION
  Report Type: Report from Study
  Country: DE (occurrence: DE)
  Receive Date: 20140120
  Receipt Date: 20141104
  Transmission Date: 20150529
  Serious: Yes (Other)
  Sender: FDA-Public Use
  Company Number: DE-NOVOPROD-397536

PATIENT
  Sex: Female
  Weight: 114 kg

DRUGS (5)
  1. L-THYROX [Concomitant]
     Active Substance: LEVOTHYROXINE SODIUM
     Indication: AUTOIMMUNE THYROIDITIS
     Dosage: 75 ?G, QD
     Route: 048
     Dates: start: 2008
  2. CORIFEO [Concomitant]
     Indication: HYPERTENSION
     Dosage: 10 MG, QD
     Route: 048
     Dates: start: 2000
  3. KARVEZIDE [Concomitant]
     Active Substance: HYDROCHLOROTHIAZIDE\IRBESARTAN
     Indication: HYPERTENSION
     Dosage: UNK (12.5/300 MG, QD)
     Route: 048
     Dates: start: 2000
  4. ESTRADIOL. [Concomitant]
     Active Substance: ESTRADIOL
     Dosage: 0.5 MG, QD
     Route: 048
     Dates: start: 2003
  5. NORDITROPIN [Suspect]
     Active Substance: SOMATROPIN
     Indication: GROWTH HORMONE DEFICIENCY
     Dosage: 0.2 MG, QD
     Route: 058
     Dates: start: 20131030, end: 20131127

REACTIONS (2)
  - Non-secretory adenoma of pituitary [Recovered/Resolved]
  - Neoplasm [Recovered/Resolved]
